FAERS Safety Report 5357081-0 (Version None)
Quarter: 2007Q2

REPORT INFORMATION
  Report Type: 
  Country: None (occurrence: None)
  Receive Date: 20070614
  Receipt Date: 20070613
  Transmission Date: 20071010
  Serious: Yes (Other)
  Sender: FDA-Public Use
  Company Number: CA-BRISTOL-MYERS SQUIBB COMPANY-13746383

PATIENT
  Age: 46 Year
  Sex: Female

DRUGS (6)
  1. ORENCIA [Suspect]
     Indication: RHEUMATOID ARTHRITIS
     Route: 042
     Dates: start: 20061026
  2. PLAQUENIL [Concomitant]
  3. PREDNISONE TAB [Concomitant]
  4. ACTONEL [Concomitant]
  5. VOLTAREN [Concomitant]
  6. NEXIUM [Concomitant]

REACTIONS (5)
  - BACK PAIN [None]
  - HELICOBACTER INFECTION [None]
  - LOWER RESPIRATORY TRACT INFECTION [None]
  - PHARYNGOLARYNGEAL PAIN [None]
  - PRODUCTIVE COUGH [None]
